FAERS Safety Report 4535772-9 (Version None)
Quarter: 2004Q4

REPORT INFORMATION
  Report Type: 
  Country: None (occurrence: None)
  Receive Date: 20041223
  Receipt Date: 20040303
  Transmission Date: 20050328
  Serious: No
  Sender: FDA-Public Use
  Company Number: US-GLAXOSMITHKLINE-A0501044A

PATIENT
  Sex: Male

DRUGS (4)
  1. FLONASE [Suspect]
     Dosage: 200MCG PER DAY
     Route: 045
  2. ISOSORBIDE [Concomitant]
  3. ASPIRIN [Concomitant]
  4. ZOCOR [Concomitant]

REACTIONS (1)
  - EPISTAXIS [None]
